FAERS Safety Report 12531824 (Version 3)
Quarter: 2016Q4

REPORT INFORMATION
  Report Type: Spontaneous
  Country: US (occurrence: US)
  Receive Date: 20160706
  Receipt Date: 20161006
  Transmission Date: 20170207
  Serious: No
  Sender: FDA-Public Use
  Company Number: US-EISAI MEDICAL RESEARCH-EC-2016-018126

PATIENT
  Sex: Female

DRUGS (4)
  1. BANZEL [Suspect]
     Active Substance: RUFINAMIDE
     Indication: RETT SYNDROME
     Route: 048
     Dates: start: 20160327, end: 2016
  2. CARBIDOPA/LEVODOPA [Concomitant]
     Active Substance: CARBIDOPA\LEVODOPA
     Indication: RETT SYNDROME
     Dosage: 10/100 MG
     Route: 048
  3. BANZEL [Suspect]
     Active Substance: RUFINAMIDE
     Route: 048
     Dates: start: 201604
  4. BANZEL [Suspect]
     Active Substance: RUFINAMIDE
     Indication: APNOEA
     Dosage: UP-TITRATED DOSE (UNSPECIFIED)
     Route: 048
     Dates: start: 2016, end: 201604

REACTIONS (6)
  - Lethargy [Recovering/Resolving]
  - Anxiety [Recovering/Resolving]
  - Hypotension [Recovering/Resolving]
  - Hyperventilation [Recovered/Resolved]
  - Somnolence [Recovering/Resolving]
  - Eye movement disorder [Not Recovered/Not Resolved]

NARRATIVE: CASE EVENT DATE: 2016
